FAERS Safety Report 10533694 (Version 1)
Quarter: 2014Q4

REPORT INFORMATION
  Report Type: Spontaneous
  Country: US (occurrence: None)
  Receive Date: 20141021
  Receipt Date: 20141021
  Transmission Date: 20150529
  Serious: Yes (Other)
  Sender: FDA-Public Use
  Company Number: None

PATIENT
  Age: 25 Year
  Sex: Female
  Weight: 49.9 kg

DRUGS (1)
  1. MIRTAZAPINE 15 MG TABLET [Suspect]
     Active Substance: MIRTAZAPINE
     Indication: MENTAL DISORDER
     Dosage: 1 DAILY AT NIGHT ONCE DAILY TAKEN BY MOUTH
     Route: 048

REACTIONS (1)
  - Sexual dysfunction [None]

NARRATIVE: CASE EVENT DATE: 20140509
